FAERS Safety Report 4643512-8 (Version None)
Quarter: 2005Q2

REPORT INFORMATION
  Report Type: 
  Country: None (occurrence: None)
  Receive Date: 20050425
  Receipt Date: 20050412
  Transmission Date: 20051028
  Serious: Yes (Other)
  Sender: FDA-Public Use
  Company Number: ES-JNJFOC-20050403062

PATIENT
  Age: 71 Year
  Sex: Male

DRUGS (8)
  1. REMICADE [Suspect]
     Indication: RHEUMATOID ARTHRITIS
     Route: 042
  2. METHOTREXATE [Concomitant]
     Indication: RHEUMATOID ARTHRITIS
  3. IDEOS [Concomitant]
  4. IDEOS [Concomitant]
     Indication: RHEUMATOID ARTHRITIS
  5. ENALAPRIL [Concomitant]
     Indication: HYPERTENSION
  6. ACETYL SALICYLIC ACID USP BAT [Concomitant]
     Indication: CARDIOMYOPATHY
  7. ATROVENT [Concomitant]
  8. PREDNISONE [Concomitant]
     Indication: RHEUMATOID ARTHRITIS

REACTIONS (2)
  - LUNG NEOPLASM MALIGNANT [None]
  - PROSTATE CANCER [None]
